FAERS Safety Report 9264497 (Version 1)
Quarter: 2013Q2

REPORT INFORMATION
  Report Type: Spontaneous
  Country: IT (occurrence: IT)
  Receive Date: 20130501
  Receipt Date: 20130501
  Transmission Date: 20140414
  Serious: Yes (Hospitalization)
  Sender: FDA-Public Use
  Company Number: PHHY2013IT041207

PATIENT
  Sex: Female

DRUGS (5)
  1. CEFTRIAXONE [Suspect]
     Indication: BRONCHITIS
     Dosage: 1 G, TOTAL
     Route: 030
     Dates: start: 20130201, end: 20130201
  2. COTAREG [Concomitant]
  3. METFORALMILLE [Concomitant]
  4. AMARYL [Concomitant]
  5. SEACOR [Concomitant]

REACTIONS (6)
  - Syncope [Recovered/Resolved]
  - Paraesthesia [Recovered/Resolved]
  - Abdominal pain upper [Recovered/Resolved]
  - Feeling hot [Recovered/Resolved]
  - Throat tightness [Recovered/Resolved]
  - Nausea [Recovered/Resolved]
